FAERS Safety Report 7589116-9 (Version None)
Quarter: 2011Q3

REPORT INFORMATION
  Report Type: 
  Country: None (occurrence: None)
  Receive Date: 20110705
  Receipt Date: 20110628
  Transmission Date: 20111222
  Serious: Yes (Other)
  Sender: FDA-Public Use
  Company Number: US-JNJFOC-20110612299

PATIENT
  Age: 31 Year
  Sex: Male
  Weight: 99.79 kg

DRUGS (3)
  1. LEVAQUIN [Suspect]
     Indication: SINUSITIS
     Route: 048
     Dates: start: 20050902
  2. LEVAQUIN [Suspect]
     Route: 048
     Dates: start: 20070301
  3. PREDNISONE [Suspect]
     Indication: PRODUCT USED FOR UNKNOWN INDICATION
     Route: 065
     Dates: start: 20070601

REACTIONS (3)
  - EPICONDYLITIS [None]
  - MUSCLE INJURY [None]
  - PLANTAR FASCIITIS [None]
